FAERS Safety Report 6751068-9 (Version None)
Quarter: 2010Q2

REPORT INFORMATION
  Report Type: 
  Country: None (occurrence: None)
  Receive Date: 20100602
  Receipt Date: 20100520
  Transmission Date: 20101027
  Serious: Yes (Hospitalization, Other)
  Sender: FDA-Public Use
  Company Number: PHHY2010US29954

PATIENT
  Sex: Female
  Weight: 57.868 kg

DRUGS (9)
  1. EXELON [Suspect]
     Indication: DEMENTIA
     Dosage: 9.5 MG/HOUR, 1 PATCH DAILY
     Route: 062
     Dates: start: 20090610
  2. ASPIRIN [Concomitant]
     Dosage: 81 MG, QD
     Route: 048
     Dates: start: 20090403
  3. CAD [Concomitant]
     Dosage: 600/400 MG TWICE DAILY
     Route: 048
     Dates: start: 20090403
  4. FLUPHENAZINE [Concomitant]
     Indication: PSYCHOTIC DISORDER
     Dosage: 2 MG, BID
     Route: 048
  5. GABAPENTIN [Concomitant]
     Indication: NEURALGIA
     Dosage: 100 MG, HS
     Route: 048
     Dates: start: 20090403
  6. LOVASTATIN [Concomitant]
     Indication: HYPERCHOLESTEROLAEMIA
     Dosage: 20 MG HS
     Route: 048
     Dates: start: 20090403
  7. METOPROLOL TARTRATE [Concomitant]
     Indication: HYPERTENSION
     Dosage: 75 MG, BID
     Dates: start: 20090428, end: 20100502
  8. MIRTAZAPINE [Concomitant]
     Dosage: 15 MG, QHS
     Route: 048
     Dates: start: 20100208, end: 20100502
  9. NAMENDA [Concomitant]
     Indication: DEMENTIA
     Dosage: 10 MG BID
     Route: 048
     Dates: start: 20091010, end: 20100502

REACTIONS (11)
  - BLOOD PRESSURE FLUCTUATION [None]
  - BRADYCARDIA [None]
  - FACIAL PALSY [None]
  - HAEMOGLOBIN DECREASED [None]
  - HEART RATE DECREASED [None]
  - HYPERTENSION [None]
  - MENTAL STATUS CHANGES [None]
  - PUPIL FIXED [None]
  - TRANSIENT ISCHAEMIC ATTACK [None]
  - UNRESPONSIVE TO STIMULI [None]
  - WRONG TECHNIQUE IN DRUG USAGE PROCESS [None]
